FAERS Safety Report 5014964-9 (Version None)
Quarter: 2006Q2

REPORT INFORMATION
  Report Type: 
  Country: None (occurrence: None)
  Receive Date: 20060414
  Receipt Date: 20060222
  Transmission Date: 20061013
  Serious: No
  Sender: FDA-Public Use
  Company Number: 2006SP000900

PATIENT
  Age: 73 Year
  Sex: Male
  Weight: 97.5234 kg

DRUGS (5)
  1. LUNESTA [Suspect]
     Indication: INSOMNIA
     Dosage: 3 MG;HS;ORAL
     Route: 048
     Dates: start: 20060220
  2. VYTORIN [Concomitant]
  3. LORAZEPAM [Concomitant]
  4. XANAX [Concomitant]
  5. PRAVACHOL [Concomitant]

REACTIONS (1)
  - INSOMNIA [None]
